FAERS Safety Report 18478321 (Version 4)
Quarter: 2021Q1

REPORT INFORMATION
  Report Type: Spontaneous
  Country: US (occurrence: US)
  Receive Date: 20201109
  Receipt Date: 20210121
  Transmission Date: 20210419
  Serious: No
  Sender: FDA-Public Use
  Company Number: US-BIOGEN-2018BI00670501

PATIENT
  Sex: Female

DRUGS (5)
  1. TECFIDERA [Suspect]
     Active Substance: DIMETHYL FUMARATE
     Route: 065
     Dates: start: 20130828
  2. TECFIDERA [Suspect]
     Active Substance: DIMETHYL FUMARATE
     Dosage: MAINTENANCE DOSE
     Route: 050
  3. TECFIDERA [Suspect]
     Active Substance: DIMETHYL FUMARATE
     Route: 065
     Dates: start: 20130828, end: 20201113
  4. TECFIDERA [Suspect]
     Active Substance: DIMETHYL FUMARATE
     Route: 050
     Dates: start: 20140723, end: 20181101
  5. TECFIDERA [Suspect]
     Active Substance: DIMETHYL FUMARATE
     Indication: MULTIPLE SCLEROSIS
     Dosage: STARTING DOSE
     Route: 050

REACTIONS (10)
  - Flushing [Not Recovered/Not Resolved]
  - Product dose omission issue [Recovered/Resolved]
  - Gastrointestinal disorder [Recovered/Resolved]
  - Liver disorder [Unknown]
  - Illness [Recovered/Resolved]
  - Abnormal faeces [Recovered/Resolved]
  - Toxicity to various agents [Recovered/Resolved]
  - Steatorrhoea [Recovered/Resolved]
  - Memory impairment [Unknown]
  - Drug intolerance [Unknown]
